FAERS Safety Report 8403439-2 (Version None)
Quarter: 2012Q2

REPORT INFORMATION
  Report Type: 
  Country: None (occurrence: None)
  Receive Date: 20120601
  Receipt Date: 20111216
  Transmission Date: 20120825
  Serious: Yes (Other)
  Sender: FDA-Public Use
  Company Number: JP-BRISTOL-MYERS SQUIBB COMPANY-16319949

PATIENT
  Sex: Female

DRUGS (2)
  1. ABILIFY [Suspect]
     Dosage: IN MORNING
     Route: 048
  2. ABILIFY [Suspect]
     Dosage: 1DF: 1BOTTLE 15-15DEC2011:1DAY:2BOTTLES
     Route: 048

REACTIONS (4)
  - INTENTIONAL SELF-INJURY [None]
  - DRUG INEFFECTIVE [None]
  - PARKINSONISM [None]
  - DELUSION [None]
